FAERS Safety Report 10355039 (Version 2)
Quarter: 2014Q3

REPORT INFORMATION
  Report Type: Spontaneous
  Country: GB (occurrence: GB)
  Receive Date: 20140731
  Receipt Date: 20140826
  Transmission Date: 20150326
  Serious: Yes (Other)
  Sender: FDA-Public Use
  Company Number: GB-TEVA-496565ISR

PATIENT
  Age: 75 Year
  Sex: Female
  Weight: 52.5 kg

DRUGS (16)
  1. ADCAL [Concomitant]
     Dates: start: 20140319
  2. BISOPROLOL [Concomitant]
     Active Substance: BISOPROLOL
     Dates: start: 20140319
  3. DOXYCYCLINE. [Concomitant]
     Active Substance: DOXYCYCLINE
     Dates: start: 20140709, end: 20140713
  4. DIAZEPAM. [Concomitant]
     Active Substance: DIAZEPAM
     Dates: start: 20140327, end: 20140625
  5. DIPYRIDAMOLE. [Concomitant]
     Active Substance: DIPYRIDAMOLE
     Dates: start: 20140417, end: 20140517
  6. LACTULOSE. [Concomitant]
     Active Substance: LACTULOSE
     Dates: start: 20140520, end: 20140617
  7. LEVOFLOXACIN [Suspect]
     Active Substance: LEVOFLOXACIN
     Dates: start: 20140714
  8. TRIMETHOPRIM. [Concomitant]
     Active Substance: TRIMETHOPRIM
     Dates: start: 20140710, end: 20140713
  9. SALBUTAMOL [Concomitant]
     Active Substance: ALBUTEROL
     Dates: start: 20140319, end: 20140505
  10. SIMVASTATIN. [Concomitant]
     Active Substance: SIMVASTATIN
     Dates: start: 20140417, end: 20140515
  11. PRAVASTATIN [Concomitant]
     Active Substance: PRAVASTATIN\PRAVASTATIN SODIUM
     Dates: start: 20140528
  12. CIPROFLOXACIN. [Concomitant]
     Active Substance: CIPROFLOXACIN
     Dates: start: 20140613, end: 20140623
  13. FLECAINIDE ACETATE. [Concomitant]
     Active Substance: FLECAINIDE ACETATE
     Dates: start: 20140319
  14. QVAR [Concomitant]
     Active Substance: BECLOMETHASONE DIPROPIONATE
     Dates: start: 20140319, end: 20140418
  15. ASPIRIN. [Concomitant]
     Active Substance: ASPIRIN
     Dates: start: 20140319
  16. DOXYCYCLINE. [Concomitant]
     Active Substance: DOXYCYCLINE
     Dates: start: 20140528, end: 20140601

REACTIONS (1)
  - Tendonitis [Not Recovered/Not Resolved]

NARRATIVE: CASE EVENT DATE: 20140714
